FAERS Safety Report 5604112-6 (Version None)
Quarter: 2008Q1

REPORT INFORMATION
  Report Type: 
  Country: None (occurrence: None)
  Receive Date: 20080123
  Receipt Date: 20080123
  Transmission Date: 20080703
  Serious: Yes (Other)
  Sender: FDA-Public Use
  Company Number: None

PATIENT
  Age: 33 Year
  Sex: Male
  Weight: 88.905 kg

DRUGS (2)
  1. TRAMADOL HCL [Suspect]
     Indication: FIBROMYALGIA
     Dosage: 1500-2000 MG DAILY DAILY PO
     Route: 048
     Dates: start: 20010325, end: 20060721
  2. TRAMADOL HCL [Suspect]
     Indication: PAIN
     Dosage: 1500-2000 MG DAILY DAILY PO
     Route: 048
     Dates: start: 20010325, end: 20060721

REACTIONS (3)
  - CONVULSION [None]
  - DRUG DEPENDENCE [None]
  - DRUG WITHDRAWAL SYNDROME [None]
